FAERS Safety Report 11115892 (Version 3)
Quarter: 2018Q3

REPORT INFORMATION
  Report Type: Report from Study
  Country: US (occurrence: US)
  Receive Date: 20150515
  Receipt Date: 20180709
  Transmission Date: 20181010
  Serious: Yes (Hospitalization, Other)
  Sender: FDA-Public Use
  Company Number: US-SA-2014SA079405

PATIENT
  Age: 32 Year
  Sex: Female

DRUGS (1)
  1. TERIFLUNOMIDE [Suspect]
     Active Substance: TERIFLUNOMIDE
     Indication: MULTIPLE SCLEROSIS
     Dosage: 14 MG,QD
     Route: 048
     Dates: start: 20140603

REACTIONS (17)
  - Headache [Unknown]
  - Paraesthesia [Unknown]
  - Hot flush [Unknown]
  - Fall [Recovered/Resolved]
  - Impaired gastric emptying [Unknown]
  - Breast enlargement [Unknown]
  - Dizziness [Unknown]
  - Fatigue [Unknown]
  - Diarrhoea [Unknown]
  - Asthenia [Recovered/Resolved]
  - Toothache [Unknown]
  - Dysstasia [Recovered/Resolved]
  - Erythema [Unknown]
  - Multiple sclerosis relapse [Recovered/Resolved]
  - Movement disorder [Recovered/Resolved]
  - Feeding disorder [Unknown]
  - Diplegia [Recovered/Resolved]

NARRATIVE: CASE EVENT DATE: 20140606
